FAERS Safety Report 17723370 (Version 2)
Quarter: 2020Q2

REPORT INFORMATION
  Report Type: Report from Study
  Country: HK (occurrence: HK)
  Receive Date: 20200429
  Receipt Date: 20200508
  Transmission Date: 20200714
  Serious: Yes (Hospitalization)
  Sender: FDA-Public Use
  Company Number: HK-PFIZER INC-2020164289

PATIENT
  Age: 67 Year
  Sex: Female
  Weight: 51.9 kg

DRUGS (6)
  1. AXITINIB [Suspect]
     Active Substance: AXITINIB
     Indication: CERVIX CARCINOMA RECURRENT
     Dosage: 5 MG, 2X/DAY
     Route: 048
     Dates: start: 20200226, end: 20200421
  2. DIPHENHYDRAMINE. [Concomitant]
     Active Substance: DIPHENHYDRAMINE
     Indication: PREMEDICATION
     Dosage: UNK, CYCLIC, Q2W
     Route: 042
     Dates: start: 20200226
  3. AVELUMAB [Suspect]
     Active Substance: AVELUMAB
     Indication: CERVIX CARCINOMA RECURRENT
     Dosage: 10 MG/KG, QEVERY 2 WEEKS
     Route: 042
     Dates: start: 20200226
  4. PARACETAMOL [Concomitant]
     Active Substance: ACETAMINOPHEN
     Indication: PREMEDICATION
     Dosage: UNK, CYCLIC, Q2W
     Route: 048
     Dates: start: 20200226
  5. LACTULOSE. [Concomitant]
     Active Substance: LACTULOSE
     Indication: CONSTIPATION
     Dosage: UNK
     Route: 048
     Dates: start: 20191117
  6. ZOPICLONE [Concomitant]
     Active Substance: ZOPICLONE
     Indication: INSOMNIA
     Dosage: UNK
     Route: 048
     Dates: start: 20191118

REACTIONS (1)
  - Peripheral swelling [Not Recovered/Not Resolved]

NARRATIVE: CASE EVENT DATE: 20200416
